FAERS Safety Report 6539011-9 (Version None)
Quarter: 2010Q1

REPORT INFORMATION
  Report Type: 
  Country: None (occurrence: None)
  Receive Date: 20100113
  Receipt Date: 20100113
  Transmission Date: 20100710
  Serious: No
  Sender: FDA-Public Use
  Company Number: None

PATIENT
  Age: 41 Year
  Sex: Male
  Weight: 72.5755 kg

DRUGS (1)
  1. DEPAKOTE ER [Suspect]
     Dosage: 1000 MG NIGHTLY ORAL
     Route: 048
     Dates: start: 20090401

REACTIONS (1)
  - BACK PAIN [None]
